FAERS Safety Report 8608068-3 (Version None)
Quarter: 2012Q3

REPORT INFORMATION
  Report Type: 
  Country: None (occurrence: None)
  Receive Date: 20120821
  Receipt Date: 20120815
  Transmission Date: 20120928
  Serious: No
  Sender: FDA-Public Use
  Company Number: US-PFIZER INC-2012111742

PATIENT
  Age: 61 Year
  Sex: Female
  Weight: 61.224 kg

DRUGS (9)
  1. LYRICA [Suspect]
     Dosage: 25 MG, ONE TO TWO CAPSULES DAILY
     Route: 048
     Dates: start: 20120101
  2. OMEPRAZOLE [Concomitant]
     Indication: GASTRIC DISORDER
     Dosage: 20 MG, 1X/DAY
  3. TRAMADOL [Concomitant]
     Dosage: 50 MG, 2X/DAY
  4. LORAZEPAM [Concomitant]
     Dosage: 1 MG, 2X/DAY
  5. LYRICA [Suspect]
     Indication: SCIATICA
     Dosage: 50 MG, ONE TO TWO CAPSULES DAILY
     Route: 048
     Dates: start: 20120101
  6. LYRICA [Suspect]
     Dosage: 50 MG, ONE TO TWO CAPSULES DAILY
  7. LEVOTHYROXINE [Concomitant]
     Dosage: 50 UG, 1X/DAY
  8. ATENOLOL [Concomitant]
     Indication: CARDIAC DISORDER
     Dosage: UNK
  9. LITHIUM [Concomitant]
     Dosage: 300 MG, 2X/DAY

REACTIONS (3)
  - DRUG INTOLERANCE [None]
  - NEURALGIA [None]
  - SOMNOLENCE [None]
